FAERS Safety Report 4279602-1 (Version None)
Quarter: 2004Q1

REPORT INFORMATION
  Report Type: 
  Country: None (occurrence: None)
  Receive Date: 20040127
  Receipt Date: 20040115
  Transmission Date: 20041129
  Serious: Yes (Other)
  Sender: FDA-Public Use
  Company Number: US-BRISTOL-MYERS SQUIBB COMPANY-12487781

PATIENT

DRUGS (1)
  1. SERZONE [Suspect]
     Route: 048
     Dates: start: 19940101, end: 20010101

REACTIONS (1)
  - HEPATITIS C [None]
